FAERS Safety Report 10986852 (Version 2)
Quarter: 2015Q2

REPORT INFORMATION
  Report Type: Spontaneous
  Country: US (occurrence: US)
  Receive Date: 20150404
  Receipt Date: 20150525
  Transmission Date: 20150821
  Serious: No
  Sender: FDA-Public Use
  Company Number: US-JNJFOC-20140215245

PATIENT
  Sex: Female

DRUGS (4)
  1. IMODIUM MULTI-SYMPTOM RELIEF [Suspect]
     Active Substance: DIMETHICONE\LOPERAMIDE HYDROCHLORIDE
     Route: 048
  2. IMODIUM MULTI-SYMPTOM RELIEF [Suspect]
     Active Substance: DIMETHICONE\LOPERAMIDE HYDROCHLORIDE
     Indication: DIARRHOEA
     Route: 048
     Dates: start: 20140220
  3. XALKORI [Concomitant]
     Active Substance: CRIZOTINIB
     Route: 065
     Dates: start: 20140218
  4. ANTI-NAUSEA DRUGS [Concomitant]
     Indication: NAUSEA
     Route: 065

REACTIONS (2)
  - Abdominal pain upper [Not Recovered/Not Resolved]
  - Product outer packaging issue [Unknown]

NARRATIVE: CASE EVENT DATE: 20140220
